FAERS Safety Report 11813481 (Version 1)
Quarter: 2015Q4

REPORT INFORMATION
  Report Type: Spontaneous
  Country: US (occurrence: None)
  Receive Date: 20151208
  Receipt Date: 20151208
  Transmission Date: 20160305
  Serious: Yes (Hospitalization)
  Sender: FDA-Public Use
  Company Number: None

PATIENT
  Age: 79 Year
  Sex: Male
  Weight: 92 kg

DRUGS (2)
  1. ERBITUX [Suspect]
     Active Substance: CETUXIMAB
     Dates: end: 20151120
  2. AFATINIB (BIBW 2992) [Suspect]
     Active Substance: AFATINIB
     Dates: end: 20151203

REACTIONS (4)
  - Dehydration [None]
  - Gait disturbance [None]
  - Chills [None]
  - Hyperglycaemia [None]

NARRATIVE: CASE EVENT DATE: 20151125
